FAERS Safety Report 10385735 (Version 3)
Quarter: 2014Q4

REPORT INFORMATION
  Report Type: Report from Study
  Country: FR (occurrence: FR)
  Receive Date: 20140814
  Receipt Date: 20141222
  Transmission Date: 20150528
  Serious: Yes (Other)
  Sender: FDA-Public Use
  Company Number: FR-BAYER-2014-116907

PATIENT
  Age: 62 Year
  Sex: Male

DRUGS (8)
  1. LYRICA [Concomitant]
     Active Substance: PREGABALIN
     Indication: PAIN
     Dosage: 12.5 MORNING AND EVENING
  2. DUROGESIC [Concomitant]
     Active Substance: FENTANYL
     Indication: PAIN
     Dosage: 37 MCH/H
  3. CELEBREX [Concomitant]
     Active Substance: CELECOXIB
     Indication: OEDEMA
     Dosage: 1 DF, OM
  4. INNOHEP [Concomitant]
     Active Substance: TINZAPARIN SODIUM
     Indication: THROMBOSIS
     Dosage: DAILY DOSE 12000 IU
  5. CORTANCYL [Concomitant]
     Active Substance: PREDNISONE
     Indication: OEDEMA
     Dosage: 1 DF, OM
  6. REGORAFENIB [Suspect]
     Active Substance: REGORAFENIB
     Indication: COLORECTAL CANCER METASTATIC
     Dosage: 120MG DAILY
     Dates: start: 201304
  7. PROFENID [Concomitant]
     Active Substance: KETOPROFEN
     Indication: OEDEMA
     Dosage: 1 DF, HS
  8. REGORAFENIB [Suspect]
     Active Substance: REGORAFENIB
     Indication: COLORECTAL CANCER METASTATIC
     Dosage: 120 MG, QD
     Dates: start: 20130507

REACTIONS (4)
  - Fatigue [None]
  - Peripheral motor neuropathy [Recovered/Resolved]
  - Peripheral motor neuropathy [Recovered/Resolved with Sequelae]
  - Fatigue [Recovered/Resolved with Sequelae]

NARRATIVE: CASE EVENT DATE: 201306
